FAERS Safety Report 5361262-X (Version None)
Quarter: 2007Q2

REPORT INFORMATION
  Report Type: 
  Country: None (occurrence: None)
  Receive Date: 20070614
  Receipt Date: 20070608
  Transmission Date: 20071010
  Serious: Yes (Disabling)
  Sender: FDA-Public Use
  Company Number: 2007-02767

PATIENT
  Age: 35 Year
  Sex: Female

DRUGS (2)
  1. TRELSTAR DEPOT [Suspect]
     Indication: OVARIAN DISORDER
     Dates: start: 20060511, end: 20070510
  2. TAMOXIFEN CITRATE [Suspect]
     Indication: OVARIAN DISORDER
     Dates: start: 20060506, end: 20070530

REACTIONS (1)
  - ARTHRALGIA [None]
